FAERS Safety Report 5657337-8 (Version None)
Quarter: 2008Q1

REPORT INFORMATION
  Report Type: 
  Country: None (occurrence: None)
  Receive Date: 20080310
  Receipt Date: 20080228
  Transmission Date: 20080703
  Serious: Yes (Hospitalization, Other)
  Sender: FDA-Public Use
  Company Number: PHHO2008DE01539

PATIENT
  Age: 71 Year
  Sex: Female

DRUGS (1)
  1. ZOLEDRONIC ACID [Suspect]
     Indication: MULTIPLE MYELOMA
     Route: 042
     Dates: start: 20050621, end: 20071106

REACTIONS (7)
  - BONE LESION EXCISION [None]
  - ERYTHEMA [None]
  - GINGIVAL INFECTION [None]
  - OSTEONECROSIS [None]
  - PAIN IN JAW [None]
  - SWELLING [None]
  - TOOTH EXTRACTION [None]
